FAERS Safety Report 9694253 (Version 1)
Quarter: 2013Q4

REPORT INFORMATION
  Report Type: Spontaneous
  Country: US (occurrence: US)
  Receive Date: 20131118
  Receipt Date: 20131118
  Transmission Date: 20140711
  Serious: No
  Sender: FDA-Public Use
  Company Number: US-PFIZER INC-2013326651

PATIENT
  Age: 58 Year
  Sex: Female
  Weight: 61.22 kg

DRUGS (6)
  1. CHANTIX [Suspect]
     Dosage: (HALF OF 1 MG TABLET), 1X/DAY
     Route: 048
     Dates: start: 20131109
  2. LEVOTHYROXINE SODIUM [Suspect]
     Indication: THYROID DISORDER
     Dosage: 50 UG, DAILY
     Dates: end: 2013
  3. LEVOTHYROXINE SODIUM [Suspect]
     Dosage: 25 UG, DAILY
     Dates: start: 2013
  4. TRAZODONE [Concomitant]
     Indication: SLEEP DISORDER
     Dosage: 200 MG, DAILY
  5. HYDROCODONE W/ACETAMINOPHEN [Concomitant]
     Indication: BACK PAIN
     Dosage: (HYDROCODONE BITARTRATE 10MG, ACETAMINOPHEN 325MG), 4X/DAY
  6. ACCOLATE [Concomitant]
     Indication: ASTHMA
     Dosage: 20 MG, 2X/DAY

REACTIONS (2)
  - Thyroid disorder [Unknown]
  - Nausea [Not Recovered/Not Resolved]
